FAERS Safety Report 9991961 (Version 1)
Quarter: 2014Q1

REPORT INFORMATION
  Report Type: Spontaneous
  Country: JP (occurrence: JP)
  Receive Date: 20140310
  Receipt Date: 20140310
  Transmission Date: 20141002
  Serious: Yes (Life-Threatening, Other)
  Sender: FDA-Public Use
  Company Number: US-ASTRAZENECA-2014SE16471

PATIENT
  Sex: 0

DRUGS (3)
  1. BLOPRESS [Suspect]
     Dosage: UNK
     Route: 048
  2. BUFFERIN [Concomitant]
     Dosage: UNK
     Route: 048
  3. PL GRAN. [Concomitant]
     Dosage: UNK
     Route: 048

REACTIONS (3)
  - Foaming at mouth [Unknown]
  - Cerebral atrophy [Unknown]
  - Cardiac failure [Unknown]
